FAERS Safety Report 24101413 (Version 1)
Quarter: 2024Q3

REPORT INFORMATION
  Report Type: Spontaneous
  Country: DE (occurrence: DE)
  Receive Date: 20240717
  Receipt Date: 20240717
  Transmission Date: 20241017
  Serious: Yes (Other)
  Sender: TEVA
  Company Number: DE-TEVA-VS-3220005

PATIENT
  Sex: Male

DRUGS (1)
  1. ATORVASTATIN [Suspect]
     Active Substance: ATORVASTATIN
     Dosage: ABZ 40 MG TABLETTE
     Route: 048

REACTIONS (3)
  - Laryngectomy [Unknown]
  - Oesophageal stenosis [Unknown]
  - Foreign body in throat [Unknown]
